FAERS Safety Report 9990644 (Version 1)
Quarter: 2014Q1

REPORT INFORMATION
  Report Type: Report from Study
  Country: US (occurrence: US)
  Receive Date: 20140310
  Receipt Date: 20140310
  Transmission Date: 20141002
  Serious: No
  Sender: FDA-Public Use
  Company Number: US-ABBVIE-13P-163-1135369-00

PATIENT
  Age: 54 Year
  Sex: Female

DRUGS (15)
  1. HUMIRA [Suspect]
     Indication: CROHN^S DISEASE
     Route: 058
     Dates: start: 201301
  2. ASACOL [Concomitant]
     Indication: CROHN^S DISEASE
  3. PLAVIX [Concomitant]
     Indication: ANTICOAGULANT THERAPY
  4. LEXAPRO [Concomitant]
     Indication: DEPRESSION
  5. METOPROLOL [Concomitant]
     Indication: HYPERTENSION
  6. ASPIRIN [Concomitant]
     Indication: ANTICOAGULANT THERAPY
  7. XANAX [Concomitant]
     Indication: ANXIETY
  8. MULTIVITAMIN [Concomitant]
     Indication: VITAMIN SUPPLEMENTATION
  9. CALCIUM WITH ZINC [Concomitant]
     Indication: VITAMIN SUPPLEMENTATION
  10. MAGNESIUM [Concomitant]
     Indication: VITAMIN SUPPLEMENTATION
  11. IRON [Concomitant]
     Indication: VITAMIN SUPPLEMENTATION
  12. ORPHENANTIN [Concomitant]
     Indication: MUSCLE RELAXANT THERAPY
  13. ZANTAC [Concomitant]
     Indication: PRODUCT USED FOR UNKNOWN INDICATION
  14. CARBINOXAMINE [Concomitant]
     Indication: UPPER-AIRWAY COUGH SYNDROME
  15. CRESTOR [Concomitant]
     Indication: BLOOD CHOLESTEROL INCREASED

REACTIONS (5)
  - Ear pain [Recovered/Resolved]
  - Upper-airway cough syndrome [Recovered/Resolved]
  - Ear infection [Recovered/Resolved]
  - Pain in jaw [Recovering/Resolving]
  - Face oedema [Recovering/Resolving]
